FAERS Safety Report 11796544 (Version 1)
Quarter: 2015Q4

REPORT INFORMATION
  Report Type: Spontaneous
  Country: US (occurrence: US)
  Receive Date: 20151203
  Receipt Date: 20151203
  Transmission Date: 20160305
  Serious: Yes (Other)
  Sender: FDA-Public Use
  Company Number: ALCN2015US007404

PATIENT
  Age: 72 Year
  Sex: Male

DRUGS (2)
  1. PILOCARPINE HCL [Suspect]
     Active Substance: PILOCARPINE HYDROCHLORIDE
     Indication: GLAUCOMA
     Dosage: 1 DF, UNK
     Route: 047
  2. EPINEPHRINE. [Concomitant]
     Active Substance: EPINEPHRINE
     Indication: GLAUCOMA
     Dosage: 1 UNK, UNK
     Route: 047

REACTIONS (6)
  - Affect lability [Recovered/Resolved]
  - Amnesia [Unknown]
  - Hallucination, visual [Recovered/Resolved]
  - Irritability [Unknown]
  - Mood swings [Unknown]
  - Confusional state [Unknown]
